FAERS Safety Report 10084270 (Version 1)
Quarter: 2014Q2

REPORT INFORMATION
  Report Type: Spontaneous
  Country: US (occurrence: None)
  Receive Date: 20140415
  Receipt Date: 20140415
  Transmission Date: 20141212
  Serious: Yes (Death)
  Sender: FDA-Public Use
  Company Number: ANI_2014_1360982

PATIENT
  Age: 50 Year
  Sex: Female

DRUGS (8)
  1. METOCLOPRAMIDE [Suspect]
  2. MORPHINE [Suspect]
  3. TRAMADOL [Suspect]
  4. CYCLOBENZAPRINE [Suspect]
  5. CARBAMAZEPINE [Suspect]
  6. DIPHENHYDRAMINE [Suspect]
  7. DIAZEPAM [Suspect]
  8. QUETIAPINE [Suspect]

REACTIONS (1)
  - Drug abuse [None]
